FAERS Safety Report 5855010-4 (Version None)
Quarter: 2008Q3

REPORT INFORMATION
  Report Type: 
  Country: None (occurrence: None)
  Receive Date: 20080822
  Receipt Date: 20080519
  Transmission Date: 20090109
  Serious: No
  Sender: FDA-Public Use
  Company Number: US-ABBOTT-08P-163-0452296-00

PATIENT
  Sex: Female
  Weight: 65.83 kg

DRUGS (3)
  1. SYNTHROID [Suspect]
     Indication: HYPOTHYROIDISM
     Route: 048
     Dates: start: 19970101, end: 20000101
  2. ESTRADIOL VALERATE [Suspect]
     Indication: HORMONE REPLACEMENT THERAPY
     Route: 050
     Dates: start: 19970101, end: 19970101
  3. VITAMIN TAB [Concomitant]
     Indication: DRUG USE FOR UNKNOWN INDICATION

REACTIONS (8)
  - AFFECT LABILITY [None]
  - ALOPECIA [None]
  - ARTHRALGIA [None]
  - DEPRESSION [None]
  - MOOD SWINGS [None]
  - OVERWEIGHT [None]
  - SUICIDAL BEHAVIOUR [None]
  - WEIGHT INCREASED [None]
